FAERS Safety Report 5464432-5 (Version None)
Quarter: 2007Q3

REPORT INFORMATION
  Report Type: 
  Country: None (occurrence: None)
  Receive Date: 20070921
  Receipt Date: 20070910
  Transmission Date: 20080115
  Serious: Yes (Other)
  Sender: FDA-Public Use
  Company Number: US-PURDUE-DEU_2007_0003621

PATIENT
  Age: 45 Year
  Sex: Female

DRUGS (6)
  1. HYDROMORPHONE HCL INJECTABLE 2MG [Suspect]
     Indication: CANCER PAIN
     Dosage: 25 MG/HR, SEE TEXT
     Route: 042
  2. MORPHINE SULFATE [Suspect]
     Indication: CANCER PAIN
     Route: 065
  3. OXYCODONE HYDROCHLORIDE [Suspect]
     Indication: CANCER PAIN
     Dosage: UNK, SEE TEXT
     Route: 065
  4. FENTANYL [Suspect]
     Indication: CANCER PAIN
     Dosage: 100 MCG, SEE TEXT
     Route: 062
  5. GABAPENTIN [Concomitant]
  6. LORAZEPAM [Concomitant]

REACTIONS (2)
  - DRUG TOLERANCE INCREASED [None]
  - HYPERAESTHESIA [None]
